FAERS Safety Report 4727831-2 (Version None)
Quarter: 2005Q3

REPORT INFORMATION
  Report Type: 
  Country: None (occurrence: None)
  Receive Date: 20050728
  Receipt Date: 20050408
  Transmission Date: 20060218
  Serious: Yes (Hospitalization, Disabling, Other)
  Sender: FDA-Public Use
  Company Number: US-MERCK-0504USA01269

PATIENT
  Age: 51 Year
  Sex: Male
  Weight: 109 kg

DRUGS (21)
  1. VIOXX [Suspect]
     Indication: BACK PAIN
     Route: 048
     Dates: start: 20000101, end: 20030101
  2. VIOXX [Suspect]
     Indication: OSTEOARTHRITIS
     Route: 048
     Dates: start: 20000101, end: 20030101
  3. OXYCONTIN [Concomitant]
     Route: 065
     Dates: start: 20000908, end: 20030801
  4. NEURONTIN [Concomitant]
     Route: 065
     Dates: start: 19990812, end: 20050401
  5. ROXICET [Concomitant]
     Route: 065
     Dates: start: 19981016, end: 20030601
  6. ACETAMINOPHEN AND OXYCODONE HYDROCHLORIDE [Concomitant]
     Route: 065
     Dates: start: 20000628, end: 20050501
  7. TYLOX [Concomitant]
     Route: 065
     Dates: start: 20000601, end: 20010701
  8. PERCOCET [Concomitant]
     Route: 065
     Dates: start: 20020301, end: 20030701
  9. NORTRIPTYLINE [Concomitant]
     Route: 065
  10. PREDNISONE [Concomitant]
     Route: 065
  11. TAMOXIFEN CITRATE [Concomitant]
     Route: 065
  12. PREVACID [Concomitant]
     Route: 065
  13. NORVASC [Concomitant]
     Route: 065
     Dates: start: 20000801, end: 20010901
  14. NORVASC [Concomitant]
     Route: 065
     Dates: start: 20030201, end: 20030401
  15. LOTENSIN [Concomitant]
     Route: 065
  16. HYDROCHLOROTHIAZIDE [Concomitant]
     Route: 065
     Dates: start: 19990401
  17. WELLBUTRIN [Concomitant]
     Route: 065
  18. RANITIDINE [Concomitant]
     Route: 065
  19. NEXIUM [Concomitant]
     Route: 065
  20. LOTREL [Concomitant]
     Route: 065
  21. AUGMENTIN '125' [Concomitant]
     Route: 065

REACTIONS (11)
  - ACUTE MYOCARDIAL INFARCTION [None]
  - ANHEDONIA [None]
  - BLOOD CHOLESTEROL INCREASED [None]
  - BLOOD PRESSURE INCREASED [None]
  - CARDIAC DISORDER [None]
  - CORONARY ARTERY DISEASE [None]
  - DYSPEPSIA [None]
  - HYPERTENSION [None]
  - MYOCARDIAL INFARCTION [None]
  - OBESITY [None]
  - PAIN [None]
